FAERS Safety Report 15051510 (Version 2)
Quarter: 2018Q3

REPORT INFORMATION
  Report Type: Report from Study
  Country: US (occurrence: US)
  Receive Date: 20180622
  Receipt Date: 20180710
  Transmission Date: 20181010
  Serious: Yes (Hospitalization)
  Sender: FDA-Public Use
  Company Number: US-EXELIXIS-CABO-18014549

PATIENT
  Sex: Male

DRUGS (2)
  1. CABOMETYX [Suspect]
     Active Substance: CABOZANTINIB S-MALATE
     Indication: RENAL CANCER
     Dosage: 40 MG, UNK
     Dates: start: 20180521, end: 20180612
  2. CABOMETYX [Suspect]
     Active Substance: CABOZANTINIB S-MALATE
     Dosage: 40 MG, QD (IN MORNING ON AN EMPTY STOMACH FOLLOWED BY FOOD 1 H AFTER TAKING MEDICATION)
     Dates: start: 20180628

REACTIONS (1)
  - Bradycardia [Recovered/Resolved]
